FAERS Safety Report 4602626-9 (Version None)
Quarter: 2005Q1

REPORT INFORMATION
  Report Type: 
  Country: None (occurrence: None)
  Receive Date: 20050307
  Receipt Date: 20050223
  Transmission Date: 20050727
  Serious: Yes (Hospitalization, Other)
  Sender: FDA-Public Use
  Company Number: US-2004-036114

PATIENT
  Age: 75 Year
  Sex: Male
  Weight: 72.6 kg

DRUGS (14)
  1. BETASERON [Suspect]
     Indication: MULTIPLE SCLEROSIS
     Dosage: 8 MIU, EVERY 2D, SUBCUTANEOUS
     Route: 058
     Dates: start: 20040713
  2. NIFEDIPINE [Concomitant]
  3. ASPIRIN [Concomitant]
  4. LISINOPRIL [Concomitant]
  5. COUMADIN    BOOTS     (WARFARIUM SODIUM) [Concomitant]
  6. PRIMIDONE [Concomitant]
  7. OMEPRAZOLE [Concomitant]
  8. PROMETHAZINE [Concomitant]
  9. DOCUSATE SODIUM (DOCUSATE SODIUM) [Concomitant]
  10. SIMVASTATIN [Concomitant]
  11. TOLTERODINE TARTRATE [Concomitant]
  12. TERAZOSIN (TERAZOSIN) [Concomitant]
  13. HYDROCHLOROTHIAZIDE [Concomitant]
  14. CITALOPRAM HYDROBROMIDE [Concomitant]

REACTIONS (11)
  - ASTHENIA [None]
  - BLOOD URINE PRESENT [None]
  - CHROMATURIA [None]
  - EATING DISORDER [None]
  - INFECTION [None]
  - LETHARGY [None]
  - MALIGNANT MELANOMA [None]
  - POLLAKIURIA [None]
  - PROGRESSIVE MULTIPLE SCLEROSIS [None]
  - TREMOR [None]
  - URINARY TRACT INFECTION [None]
